FAERS Safety Report 13779532 (Version 1)
Quarter: 2017Q3

REPORT INFORMATION
  Report Type: Spontaneous
  Country: US (occurrence: US)
  Receive Date: 20170721
  Receipt Date: 20170721
  Transmission Date: 20171127
  Serious: Yes (Hospitalization, Other)
  Sender: FDA-Public Use
  Company Number: US-GLAXOSMITHKLINE-US2017112322

PATIENT
  Age: 78 Year
  Sex: Female

DRUGS (10)
  1. ANORO ELLIPTA [Suspect]
     Active Substance: UMECLIDINIUM BROMIDE\VILANTEROL TRIFENATATE
     Indication: CHRONIC OBSTRUCTIVE PULMONARY DISEASE
     Dosage: 1 PUFF(S), QD
     Route: 055
     Dates: start: 201606
  2. ADVAIR DISKUS [Suspect]
     Active Substance: FLUTICASONE PROPIONATE\SALMETEROL XINAFOATE
     Indication: BRONCHITIS CHRONIC
  3. ALPRAZOLAM. [Concomitant]
     Active Substance: ALPRAZOLAM
  4. TEMAZEPAM. [Concomitant]
     Active Substance: TEMAZEPAM
  5. ADVAIR DISKUS [Suspect]
     Active Substance: FLUTICASONE PROPIONATE\SALMETEROL XINAFOATE
     Indication: CHRONIC OBSTRUCTIVE PULMONARY DISEASE
     Dosage: 1 PUFF(S), BID
     Route: 055
     Dates: start: 201703, end: 201707
  6. CODEINE COUGH SYRUP [Concomitant]
     Active Substance: CODEINE
  7. OMEPRAZOLE. [Concomitant]
     Active Substance: OMEPRAZOLE
  8. GABAPENTIN. [Concomitant]
     Active Substance: GABAPENTIN
  9. SIMVASTATIN. [Concomitant]
     Active Substance: SIMVASTATIN
  10. ELIQUIS [Concomitant]
     Active Substance: APIXABAN

REACTIONS (6)
  - Cough [Unknown]
  - Sputum discoloured [Unknown]
  - Dyspnoea [Unknown]
  - Pneumonia [Recovered/Resolved]
  - Dysphonia [Not Recovered/Not Resolved]
  - Productive cough [Unknown]

NARRATIVE: CASE EVENT DATE: 201701
